FAERS Safety Report 18311231 (Version 1)
Quarter: 2020Q3

REPORT INFORMATION
  Report Type: Spontaneous
  Country: JP (occurrence: JP)
  Receive Date: 20200925
  Receipt Date: 20200925
  Transmission Date: 20201103
  Serious: Yes (Hospitalization)
  Sender: FDA-Public Use
  Company Number: JP-ELI_LILLY_AND_COMPANY-JP202009010058

PATIENT
  Age: 81 Year
  Sex: Male

DRUGS (6)
  1. TRULICITY [Suspect]
     Active Substance: DULAGLUTIDE
     Indication: DIABETES MELLITUS INADEQUATE CONTROL
     Dosage: UNK
     Route: 058
  2. SUREPOST [Suspect]
     Active Substance: REPAGLINIDE
     Dosage: UNK
     Route: 048
     Dates: start: 202009
  3. SUREPOST [Suspect]
     Active Substance: REPAGLINIDE
     Indication: TYPE 2 DIABETES MELLITUS
     Dosage: UNK
     Route: 048
  4. HUMALOG N INJECTION [Suspect]
     Active Substance: INSULIN LISPRO
     Indication: TYPE 2 DIABETES MELLITUS
     Route: 058
  5. PREDNISOLONE. [Suspect]
     Active Substance: PREDNISOLONE
     Indication: TAKAYASU^S ARTERITIS
     Dosage: UNK
  6. PREDNISOLONE. [Suspect]
     Active Substance: PREDNISOLONE
     Dosage: UNK
     Dates: start: 202009

REACTIONS (4)
  - Diabetes mellitus inadequate control [Recovered/Resolved]
  - Unevaluable event [Recovered/Resolved]
  - Diabetes mellitus [Recovered/Resolved]
  - Takayasu^s arteritis [Recovered/Resolved]

NARRATIVE: CASE EVENT DATE: 202009
